FAERS Safety Report 12326178 (Version 1)
Quarter: 2016Q2

REPORT INFORMATION
  Report Type: Spontaneous
  Country: IT (occurrence: IT)
  Receive Date: 20160503
  Receipt Date: 20160503
  Transmission Date: 20160815
  Serious: Yes (Hospitalization)
  Sender: FDA-Public Use
  Company Number: IT-ACCORD-039895

PATIENT
  Age: 47 Year
  Sex: Male

DRUGS (9)
  1. MYCOPHENOLIC ACID. [Suspect]
     Active Substance: MYCOPHENOLIC ACID
     Indication: LIVER TRANSPLANT
  2. PIPERACILLIN/TAZOBACTAM [Concomitant]
     Indication: EVIDENCE BASED TREATMENT
  3. LINEZOLID. [Concomitant]
     Active Substance: LINEZOLID
     Indication: EVIDENCE BASED TREATMENT
  4. MEROPENEM. [Concomitant]
     Active Substance: MEROPENEM
     Indication: EVIDENCE BASED TREATMENT
  5. ANIDULAFUNGIN [Concomitant]
     Active Substance: ANIDULAFUNGIN
  6. FLUCONAZOLE. [Suspect]
     Active Substance: FLUCONAZOLE
     Indication: EVIDENCE BASED TREATMENT
  7. VANCOMYCIN [Concomitant]
     Active Substance: VANCOMYCIN
     Indication: EVIDENCE BASED TREATMENT
  8. TACROLIMUS. [Suspect]
     Active Substance: TACROLIMUS
     Indication: LIVER TRANSPLANT
  9. PREDNISONE. [Suspect]
     Active Substance: PREDNISONE
     Indication: LIVER TRANSPLANT

REACTIONS (7)
  - Drug level increased [Recovered/Resolved]
  - Pneumonia klebsiella [Recovered/Resolved]
  - Septic shock [Recovered/Resolved]
  - Systemic candida [Recovered/Resolved]
  - Enterococcal infection [Recovered/Resolved]
  - Drug resistance [Unknown]
  - Candida infection [Recovered/Resolved]
